FAERS Safety Report 6497346-2 (Version None)
Quarter: 2009Q4

REPORT INFORMATION
  Report Type: 
  Country: None (occurrence: None)
  Receive Date: 20091215
  Receipt Date: 20091005
  Transmission Date: 20100525
  Serious: No
  Sender: FDA-Public Use
  Company Number: A0810367A

PATIENT
  Sex: Male

DRUGS (10)
  1. AVODART [Suspect]
     Indication: BENIGN PROSTATIC HYPERPLASIA
     Dosage: 1TAB PER DAY
     Route: 048
     Dates: start: 20090101
  2. TYLENOL W/ CODEINE [Concomitant]
  3. KLOR-CON [Concomitant]
  4. LIPITOR [Concomitant]
  5. ASPIRIN [Concomitant]
  6. ISOSORBIDE [Concomitant]
  7. PLAVIX [Concomitant]
  8. HYDROCHLOROTHIAZIDE [Concomitant]
  9. METOPROLOL TARTRATE [Concomitant]
  10. METFORMIN HCL [Concomitant]

REACTIONS (2)
  - ERECTILE DYSFUNCTION [None]
  - LOCAL SWELLING [None]
